FAERS Safety Report 11569228 (Version 1)
Quarter: 2015Q3

REPORT INFORMATION
  Report Type: Spontaneous
  Country: US (occurrence: US)
  Receive Date: 20150929
  Receipt Date: 20150929
  Transmission Date: 20151125
  Serious: No
  Sender: FDA-Public Use
  Company Number: US-JNJFOC-20150822998

PATIENT
  Age: 8 Year
  Sex: Male
  Weight: 32.21 kg

DRUGS (4)
  1. BENADRYL [Concomitant]
     Active Substance: DIPHENHYDRAMINE HYDROCHLORIDE
     Indication: PRODUCT USED FOR UNKNOWN INDICATION
     Route: 065
  2. PEPCID AC [Suspect]
     Active Substance: FAMOTIDINE
     Route: 048
  3. PENICILLIN [Concomitant]
     Active Substance: PENICILLIN
     Indication: PRODUCT USED FOR UNKNOWN INDICATION
     Dosage: 10 DAY
     Route: 065
  4. PEPCID AC [Suspect]
     Active Substance: FAMOTIDINE
     Indication: URTICARIA
     Route: 048
     Dates: start: 20150827

REACTIONS (2)
  - Product use issue [Unknown]
  - Drug ineffective for unapproved indication [Unknown]

NARRATIVE: CASE EVENT DATE: 20150827
